FAERS Safety Report 8557513-0 (Version None)
Quarter: 2012Q3

REPORT INFORMATION
  Report Type: 
  Country: None (occurrence: None)
  Receive Date: 20120725
  Receipt Date: 20120725
  Transmission Date: 20120928
  Serious: No
  Sender: FDA-Public Use
  Company Number: None

PATIENT
  Age: 31 Year
  Sex: Male
  Weight: 95.2554 kg

DRUGS (1)
  1. OPANA ER [Suspect]
     Indication: INTERVERTEBRAL DISC PROTRUSION
     Dosage: 10MG TID PO
     Route: 048
     Dates: start: 20120711, end: 20120720

REACTIONS (4)
  - VOMITING [None]
  - PRODUCT FORMULATION ISSUE [None]
  - ABDOMINAL PAIN UPPER [None]
  - MALAISE [None]
